FAERS Safety Report 20983634 (Version 2)
Quarter: 2022Q2

REPORT INFORMATION
  Report Type: Report from Study
  Country: ES (occurrence: ES)
  Receive Date: 20220620
  Receipt Date: 20220630
  Transmission Date: 20220721
  Serious: Yes (Other)
  Sender: FDA-Public Use
  Company Number: ES-JNJFOC-20220628716

PATIENT
  Age: 69 Year
  Sex: Male

DRUGS (1)
  1. IBRUTINIB [Suspect]
     Active Substance: IBRUTINIB
     Indication: Chronic lymphocytic leukaemia
     Route: 048
     Dates: start: 20180321, end: 20220614

REACTIONS (2)
  - Post procedural haemorrhage [Recovered/Resolved]
  - Bladder operation [Recovered/Resolved]

NARRATIVE: CASE EVENT DATE: 20220527
